FAERS Safety Report 8369969 (Version 2)
Quarter: 2013Q1

REPORT INFORMATION
  Report Type: Report from Study
  Country: US (occurrence: US)
  Receive Date: 20120128
  Receipt Date: 20130131
  Transmission Date: 20140127
  Serious: Yes (Other)
  Sender: FDA-Public Use
  Company Number: US-ABBOTT-11P-163-0835565-00

PATIENT
  Age: 56 Year
  Sex: Female

DRUGS (8)
  1. HUMIRA 40 MG/0.8 ML PEN [Suspect]
     Indication: CROHN^S DISEASE
     Route: 058
     Dates: start: 200906, end: 201006
  2. HUMIRA 40 MG/0.8 ML PEN [Suspect]
     Route: 058
     Dates: start: 201006
  3. SIMVASTATIN [Concomitant]
     Indication: BLOOD CHOLESTEROL INCREASED
     Dosage: DAILY
  4. RANITIDINE [Concomitant]
     Indication: GASTRIC DISORDER
     Dosage: DAILY
  5. GABAPENTIN [Concomitant]
     Indication: NEURALGIA
     Dosage: DAILY
  6. SPIRIVA [Concomitant]
     Indication: CHRONIC OBSTRUCTIVE PULMONARY DISEASE
  7. IRON INFUSIONS [Concomitant]
     Indication: PRODUCT USED FOR UNKNOWN INDICATION
     Dosage: WEEKLY
  8. 6-MP [Concomitant]
     Indication: CROHN^S DISEASE
     Dosage: DAILY

REACTIONS (3)
  - Impaired healing [Not Recovered/Not Resolved]
  - Escherichia infection [Not Recovered/Not Resolved]
  - Drug ineffective [Recovering/Resolving]
